APPROVED DRUG PRODUCT: EMVERM
Active Ingredient: MEBENDAZOLE
Strength: 100MG
Dosage Form/Route: TABLET, CHEWABLE;ORAL
Application: A073580 | Product #001
Applicant: IMPAX LABORATORIES INC
Approved: Jan 4, 1995 | RLD: No | RS: Yes | Type: RX